FAERS Safety Report 9159505 (Version 3)
Quarter: 2013Q2

REPORT INFORMATION
  Report Type: Spontaneous
  Country: US (occurrence: None)
  Receive Date: 20130215
  Receipt Date: 20130509
  Transmission Date: 20140414
  Serious: Yes (Hospitalization)
  Sender: FDA-Public Use
  Company Number: 145418

PATIENT
  Age: 57 Year
  Sex: Male
  Weight: 52 kg

DRUGS (1)
  1. ETOPOSIDE [Suspect]
     Indication: NON-SMALL CELL LUNG CANCER STAGE III
     Dosage: 50MG/M2, DAY 1-5, 29-33
     Dates: start: 20120903, end: 20121012

REACTIONS (2)
  - Pneumonia [None]
  - Lobar pneumonia [None]
